FAERS Safety Report 17825258 (Version 1)
Quarter: 2020Q2

REPORT INFORMATION
  Report Type: Spontaneous
  Country: US (occurrence: US)
  Receive Date: 20200526
  Receipt Date: 20200526
  Transmission Date: 20200714
  Serious: No
  Sender: FDA-Public Use
  Company Number: US-GLAXOSMITHKLINE-US2020087295

PATIENT
  Sex: Male

DRUGS (2)
  1. FLONASE [Suspect]
     Active Substance: FLUTICASONE PROPIONATE
     Indication: HYPERSENSITIVITY
     Dosage: UNK (2 SPRAYS PER NOSTRIL 1ST WEEK)
  2. FLONASE [Suspect]
     Active Substance: FLUTICASONE PROPIONATE
     Dosage: UNK (1 SPRAY PER NOSTRIL THE WEEK AFTER)

REACTIONS (4)
  - Asthenia [Unknown]
  - Throat irritation [Unknown]
  - Feeling abnormal [Unknown]
  - Cough [Unknown]
